FAERS Safety Report 4501256-7 (Version None)
Quarter: 2004Q4

REPORT INFORMATION
  Report Type: 
  Country: None (occurrence: None)
  Receive Date: 20041110
  Receipt Date: 20041025
  Transmission Date: 20050328
  Serious: Yes (Hospitalization)
  Sender: FDA-Public Use
  Company Number: 210072

PATIENT
  Age: 38 Year
  Sex: Female

DRUGS (3)
  1. RITUXAN [Suspect]
     Indication: SYSTEMIC LUPUS ERYTHEMATOSUS
     Dosage: 375 MG/M2, 1/WEEK, INTRAVENOUS
     Route: 042
  2. CYCLOPHOSPHAMIDE [Concomitant]
  3. ANTICOAGULANT THERAPY (ANTICOAGULANT NOS) [Concomitant]

REACTIONS (14)
  - ANURIA [None]
  - BLOOD PRESSURE INCREASED [None]
  - CONDITION AGGRAVATED [None]
  - CONVULSION [None]
  - GALLOP RHYTHM PRESENT [None]
  - HAEMODIALYSIS [None]
  - HEADACHE [None]
  - HYPERTENSION [None]
  - HYPOTENSION [None]
  - RENAL IMPAIRMENT [None]
  - REVERSIBLE POSTERIOR LEUKOENCEPHALOPATHY SYNDROME [None]
  - SYSTEMIC LUPUS ERYTHEMATOSUS [None]
  - THROMBOTIC MICROANGIOPATHY [None]
  - VISION BLURRED [None]
